FAERS Safety Report 8545842-6 (Version None)
Quarter: 2012Q3

REPORT INFORMATION
  Report Type: 
  Country: None (occurrence: None)
  Receive Date: 20120727
  Receipt Date: 20111114
  Transmission Date: 20120928
  Serious: No
  Sender: FDA-Public Use
  Company Number: US-ASTRAZENECA-2011SE68805

PATIENT
  Age: 23 Year
  Sex: Male
  Weight: 103.9 kg

DRUGS (11)
  1. CLONIPINE [Concomitant]
  2. PROTONIX [Concomitant]
  3. LEXAPRO [Concomitant]
  4. LORAZEPAM [Concomitant]
     Dates: start: 20020212
  5. TOPAMAX [Concomitant]
     Route: 048
     Dates: start: 20020921
  6. EFFEXOR XR [Concomitant]
     Dates: start: 20020322
  7. SEROQUEL [Suspect]
     Route: 048
     Dates: start: 20020121
  8. ZYPREXA [Concomitant]
  9. DEPAKOTE ER [Concomitant]
     Dates: start: 20020318
  10. DEXEDRINE [Concomitant]
     Route: 048
     Dates: start: 20010314
  11. RITALIN [Concomitant]
     Dates: start: 20020311

REACTIONS (13)
  - DIZZINESS [None]
  - WEIGHT INCREASED [None]
  - LACERATION [None]
  - PAIN IN EXTREMITY [None]
  - CONTUSION [None]
  - DERMAL CYST [None]
  - NERVOUS SYSTEM DISORDER [None]
  - HYPOAESTHESIA [None]
  - EXCORIATION [None]
  - TYPE 2 DIABETES MELLITUS [None]
  - HEADACHE [None]
  - LIMB DISCOMFORT [None]
  - DEAFNESS [None]
